FAERS Safety Report 13738750 (Version 1)
Quarter: 2017Q3

REPORT INFORMATION
  Report Type: Report from Study
  Country: US (occurrence: US)
  Receive Date: 20170710
  Receipt Date: 20170710
  Transmission Date: 20171127
  Serious: No
  Sender: FDA-Public Use
  Company Number: US-SAOL THERAPEUTICS-0701015409

PATIENT
  Age: 51 Year
  Sex: Female

DRUGS (14)
  1. BUPIVACAINE. [Suspect]
     Active Substance: BUPIVACAINE
     Dosage: 13.959 MG, \DAY
     Route: 037
     Dates: start: 20150409
  2. HYDROMORPHONE [Concomitant]
     Active Substance: HYDROMORPHONE
     Route: 037
  3. BUPIVACAINE. [Suspect]
     Active Substance: BUPIVACAINE
     Dosage: 10.491 MG, \DAY
     Route: 037
     Dates: start: 20150409
  4. COMPOUNDED BACLOFEN [Suspect]
     Active Substance: BACLOFEN
     Indication: PAIN
     Dosage: 60.05 ?G, \DAY
     Route: 037
  5. BUPIVACAINE. [Suspect]
     Active Substance: BUPIVACAINE
     Dosage: 9.941 MG, \DAY
     Route: 037
     Dates: start: 20150303
  6. BUPIVACAINE. [Suspect]
     Active Substance: BUPIVACAINE
     Dosage: 12.010 MG, \DAY
     Route: 037
  7. COMPOUNDED MORPHINE [Suspect]
     Active Substance: MORPHINE
     Dosage: 0.349 MG, \DAY
     Route: 037
     Dates: start: 20150409
  8. COMPOUNDED MORPHINE [Suspect]
     Active Substance: MORPHINE
     Dosage: 0.465 MG, \DAY
     Route: 037
     Dates: start: 20150409
  9. COMPOUNDED BACLOFEN [Suspect]
     Active Substance: BACLOFEN
     Dosage: 69.79 ?G, \DAY
     Route: 037
     Dates: start: 20150409
  10. BUPIVACAINE. [Suspect]
     Active Substance: BUPIVACAINE
     Dosage: 13.416 MG, \DAY
     Route: 037
     Dates: start: 20150303
  11. COMPOUNDED BACLOFEN [Suspect]
     Active Substance: BACLOFEN
     Dosage: 52.45 ?G, \DAY
     Route: 037
     Dates: start: 20150409
  12. COMPOUNDED MORPHINE [Suspect]
     Active Substance: MORPHINE
     Dosage: 0.400 MG, \DAY
     Route: 037
  13. COMPOUNDED MORPHINE [Suspect]
     Active Substance: MORPHINE
     Dosage: 0.331 MG, \DAY
     Route: 037
     Dates: start: 20150303
  14. COMPOUNDED MORPHINE [Suspect]
     Active Substance: MORPHINE
     Dosage: 0.447 MG, \DAY
     Route: 037
     Dates: start: 20150303

REACTIONS (3)
  - Burning sensation [Recovered/Resolved]
  - Off label use [Unknown]
  - Vulvovaginal burning sensation [Recovered/Resolved]

NARRATIVE: CASE EVENT DATE: 20150709
